FAERS Safety Report 5866303-9 (Version None)
Quarter: 2008Q3

REPORT INFORMATION
  Report Type: 
  Country: None (occurrence: None)
  Receive Date: 20080901
  Receipt Date: 20080821
  Transmission Date: 20090109
  Serious: Yes (Other)
  Sender: FDA-Public Use
  Company Number: PHEH2008US07422

PATIENT
  Age: 66 Year
  Sex: Female

DRUGS (9)
  1. TRILEPTAL [Suspect]
     Indication: PARTIAL SEIZURES
     Dosage: 300 MG, BID
     Route: 048
     Dates: start: 20060901
  2. SINGULAIR [Concomitant]
     Dosage: 10 MG, QD
     Route: 048
  3. RISPERIDONE [Concomitant]
     Dosage: 1MG AM, 2MG PM AND HS
     Route: 048
  4. CLONAZEPAM [Concomitant]
     Dosage: 0.5 MG, TID
     Route: 048
  5. DICYCLOMINE [Concomitant]
     Dosage: 10 MG, QID
     Route: 048
  6. ALBUTEROL [Concomitant]
     Dosage: 2 PUFFS FOUR TIMES DAILY
  7. CITALOPRAM HYDROBROMIDE [Concomitant]
     Dosage: 20 MG, QD
     Route: 048
  8. SEROQUEL [Concomitant]
     Dosage: 50 MG, QID
     Route: 048
  9. COLACE [Concomitant]
     Dosage: UNK
     Route: 048

REACTIONS (2)
  - DEMENTIA [None]
  - GRAND MAL CONVULSION [None]
